FAERS Safety Report 5527072-5 (Version None)
Quarter: 2007Q4

REPORT INFORMATION
  Report Type: 
  Country: None (occurrence: None)
  Receive Date: 20071127
  Receipt Date: 20071116
  Transmission Date: 20080405
  Serious: Yes (Hospitalization)
  Sender: FDA-Public Use
  Company Number: HK-MERCK-0711HKG00005

PATIENT

DRUGS (1)
  1. INVANZ [Suspect]
     Indication: INFECTION
     Route: 051

REACTIONS (3)
  - PNEUMONIA [None]
  - TREATMENT FAILURE [None]
  - WHEEZING [None]
